FAERS Safety Report 11238678 (Version 2)
Quarter: 2015Q3

REPORT INFORMATION
  Report Type: Report from Study
  Country: AU (occurrence: AU)
  Receive Date: 20150706
  Receipt Date: 20150804
  Transmission Date: 20151125
  Serious: Yes (Hospitalization)
  Sender: FDA-Public Use
  Company Number: PHHY2015AU078310

PATIENT
  Age: 37 Year
  Sex: Male
  Weight: 108 kg

DRUGS (17)
  1. CLOZARIL [Suspect]
     Active Substance: CLOZAPINE
     Dosage: 275 MG, (75 MG MANE AND 200 MG NOCTE)
     Route: 065
  2. ARIPIPRAZOLE. [Concomitant]
     Active Substance: ARIPIPRAZOLE
     Indication: SCHIZOPHRENIA
     Dosage: 25 MG, QD AT MORNING
     Route: 048
  3. VENLAFAXINE [Concomitant]
     Active Substance: VENLAFAXINE HYDROCHLORIDE
     Indication: DEPRESSION
     Dosage: 150 MG, QD IN MORNING
     Route: 048
  4. VALPROATE [Concomitant]
     Active Substance: VALPROATE SODIUM
     Indication: PRODUCT USED FOR UNKNOWN INDICATION
     Dosage: 1000 MG, BID
     Route: 048
  5. ZUCLOPENTHIXOL [Concomitant]
     Active Substance: ZUCLOPENTHIXOL
     Indication: SCHIZOPHRENIA
     Dosage: 150 MG, QMO (FORTNIGHTLY)
     Route: 030
     Dates: end: 20150625
  6. CLOZARIL [Suspect]
     Active Substance: CLOZAPINE
     Dosage: 300 MG
     Route: 048
  7. ROSUVASTATIN [Concomitant]
     Active Substance: ROSUVASTATIN
     Indication: HYPERLIPIDAEMIA
     Dosage: 5 MG, QD IN MORNING
     Route: 048
  8. ATENOLOL. [Concomitant]
     Active Substance: ATENOLOL
     Indication: PRODUCT USED FOR UNKNOWN INDICATION
     Dosage: 50 MG, QD IN MORNING
     Route: 048
  9. CLOZARIL [Suspect]
     Active Substance: CLOZAPINE
     Dosage: 200 MG (50 MG IN MORNING AND 150 MG IN NIGHT)
     Route: 048
  10. METFORMIN [Concomitant]
     Active Substance: METFORMIN HYDROCHLORIDE
     Indication: TYPE 2 DIABETES MELLITUS
     Dosage: 500 MG, QD AT EVENING
     Route: 048
  11. WARFARIN [Concomitant]
     Active Substance: WARFARIN
     Indication: PRODUCT USED FOR UNKNOWN INDICATION
     Dosage: UNK
     Route: 065
  12. CLOZARIL [Suspect]
     Active Substance: CLOZAPINE
     Indication: SCHIZOPHRENIA
     Dosage: 100 MG
     Route: 048
     Dates: start: 20080617
  13. CLOZARIL [Suspect]
     Active Substance: CLOZAPINE
     Dosage: 300 MG
     Route: 048
  14. OLANZAPINE. [Concomitant]
     Active Substance: OLANZAPINE
     Indication: SCHIZOPHRENIA
     Dosage: 10 MG, BID
     Route: 048
  15. CLOZARIL [Suspect]
     Active Substance: CLOZAPINE
     Dosage: 600 MG, (HIGHEST DOSE)
     Route: 048
  16. CLOZARIL [Suspect]
     Active Substance: CLOZAPINE
     Dosage: 200 MG (RETITRATED)
     Route: 048
  17. CLOZARIL [Suspect]
     Active Substance: CLOZAPINE
     Dosage: 600 OT
     Route: 048

REACTIONS (1)
  - Psychotic disorder [Unknown]

NARRATIVE: CASE EVENT DATE: 20150622
